FAERS Safety Report 25339413 (Version 1)
Quarter: 2025Q2

REPORT INFORMATION
  Report Type: Report from Study
  Country: US (occurrence: US)
  Receive Date: 20250521
  Receipt Date: 20250521
  Transmission Date: 20250717
  Serious: Yes (Hospitalization, Other)
  Sender: ABBVIE
  Company Number: US-ABBVIE-6251655

PATIENT
  Age: 49 Year
  Sex: Female

DRUGS (16)
  1. BOTOX [Suspect]
     Active Substance: ONABOTULINUMTOXINA
     Indication: Hemiparesis
     Route: 065
  2. BOTOX [Suspect]
     Active Substance: ONABOTULINUMTOXINA
     Indication: Hemiparesis
     Route: 030
     Dates: start: 202312, end: 202312
  3. BOTOX [Suspect]
     Active Substance: ONABOTULINUMTOXINA
     Indication: Hemiparesis
     Route: 030
     Dates: start: 202504, end: 202504
  4. AMITRIPTYLINE [Concomitant]
     Active Substance: AMITRIPTYLINE
     Indication: Product used for unknown indication
     Dosage: 1 TABLET (50 MG) BY ORAL ROUTE ONCE DAILY AT BEDTIME FOR 90 DAYS
     Route: 048
  5. ASPIRIN [Concomitant]
     Active Substance: ASPIRIN
     Indication: Product used for unknown indication
     Dosage: 1 TABLET (81 MG) BY ORAL ROUTE ONCE DAILY
     Route: 048
  6. BACLOFEN [Concomitant]
     Active Substance: BACLOFEN
     Indication: Product used for unknown indication
     Route: 048
  7. DAYVIGO [Concomitant]
     Active Substance: LEMBOREXANT
     Indication: Product used for unknown indication
     Route: 048
     Dates: start: 20250429
  8. GABAPENTIN [Concomitant]
     Active Substance: GABAPENTIN
     Indication: Product used for unknown indication
     Dosage: 4 CAPSULES BY ORAL ROUTE 3 TIMES A DAY FOR 30 DAYS
     Route: 048
     Dates: start: 20250429
  9. MOMETASONE [Concomitant]
     Active Substance: MOMETASONE
     Indication: Product used for unknown indication
     Dates: start: 20171120
  10. MYRBETRIQ [Concomitant]
     Active Substance: MIRABEGRON
     Indication: Product used for unknown indication
     Dosage: 1 TABLET (50 MG) BY ORAL ROUTE ONCE DAILY SWALLOWING WHOLE WITH WATER. DO NOT CRUSH, CHEW AND/OR ...
     Route: 048
  11. NAPROSYN [Concomitant]
     Active Substance: NAPROXEN
     Indication: Product used for unknown indication
     Route: 048
  12. NAYZILAM [Concomitant]
     Active Substance: MIDAZOLAM
     Indication: Product used for unknown indication
     Route: 045
     Dates: start: 20250305
  13. PANTOPRAZOLE [Concomitant]
     Active Substance: PANTOPRAZOLE
     Indication: Product used for unknown indication
     Dosage: 0.5 TABLET BY ORAL ROUTE DAILY
     Route: 048
  14. PROTONIX [Concomitant]
     Active Substance: PANTOPRAZOLE SODIUM
     Indication: Product used for unknown indication
     Route: 048
  15. QULIPTA [Concomitant]
     Active Substance: ATOGEPANT
     Indication: Headache
     Route: 048
     Dates: start: 20250429
  16. UBRELVY [Concomitant]
     Active Substance: UBROGEPANT
     Indication: Product used for unknown indication
     Route: 048
     Dates: start: 20250429

REACTIONS (4)
  - Cerebrovascular accident [Unknown]
  - Focal dyscognitive seizures [Unknown]
  - Headache [Unknown]
  - Arthralgia [Unknown]

NARRATIVE: CASE EVENT DATE: 20240627
